FAERS Safety Report 10468378 (Version 2)
Quarter: 2016Q3

REPORT INFORMATION
  Report Type: Spontaneous
  Country: US (occurrence: US)
  Receive Date: 20140922
  Receipt Date: 20160920
  Transmission Date: 20161109
  Serious: No
  Sender: FDA-Public Use
  Company Number: US-ALLERGAN-1410371US

PATIENT
  Sex: Female

DRUGS (2)
  1. LASTACAFT [Suspect]
     Active Substance: ALCAFTADINE
     Indication: PRODUCT USED FOR UNKNOWN INDICATION
     Dosage: UNK
     Route: 047
  2. LASTACAFT [Suspect]
     Active Substance: ALCAFTADINE
     Dosage: UNK
     Route: 047
     Dates: start: 2014

REACTIONS (3)
  - Eye irritation [Unknown]
  - Eyelid oedema [Unknown]
  - Blepharal pigmentation [Unknown]
